APPROVED DRUG PRODUCT: FORTOVASE
Active Ingredient: SAQUINAVIR
Strength: 200MG **Federal Register determination that product was not discontinued or withdrawn for safety or effectiveness reasons**
Dosage Form/Route: CAPSULE;ORAL
Application: N020828 | Product #001
Applicant: HOFFMANN LA ROCHE INC
Approved: Nov 7, 1997 | RLD: Yes | RS: No | Type: DISCN